FAERS Safety Report 5440467-3 (Version None)
Quarter: 2007Q3

REPORT INFORMATION
  Report Type: 
  Country: None (occurrence: None)
  Receive Date: 20070831
  Receipt Date: 20070829
  Transmission Date: 20080115
  Serious: Yes (Death, Life-Threatening, Hospitalization, Other)
  Sender: FDA-Public Use
  Company Number: FR-ELI_LILLY_AND_COMPANY-FR200708006287

PATIENT
  Age: 58 Year
  Sex: Female

DRUGS (11)
  1. GEMZAR [Suspect]
     Indication: BREAST CANCER METASTATIC
     Dosage: 1250 MG/M2, OTHER
     Route: 042
     Dates: start: 20070411
  2. TAXOL [Concomitant]
     Indication: BREAST CANCER METASTATIC
     Dosage: 175 MG/M2, OTHER
     Route: 042
     Dates: start: 20070411, end: 20070503
  3. TAXOL [Concomitant]
     Dosage: 90 MG/M2, OTHER
     Route: 042
     Dates: start: 20070523, end: 20070627
  4. AVASTIN [Concomitant]
     Indication: BREAST CANCER METASTATIC
     Dosage: 15 MG/KG, OTHER
     Route: 042
     Dates: start: 20070503, end: 20070503
  5. AVASTIN [Concomitant]
     Dosage: 10 MG/KG, OTHER
     Route: 042
     Dates: start: 20070524, end: 20070627
  6. PROZAC [Concomitant]
     Dosage: UNK, UNKNOWN
     Route: 065
  7. LEVOTHYROXINE SODIUM [Concomitant]
     Dosage: UNK, UNKNOWN
     Route: 065
  8. ALDACTONE [Concomitant]
     Dosage: UNK, UNKNOWN
     Route: 065
  9. XANAX [Concomitant]
     Dosage: UNK, UNKNOWN
     Route: 065
  10. STILNOX /FRA/ [Concomitant]
     Dosage: UNK, UNKNOWN
     Route: 065
  11. LASIX [Concomitant]
     Dosage: UNK, UNKNOWN
     Route: 065

REACTIONS (3)
  - FEBRILE NEUTROPENIA [None]
  - MALIGNANT NEOPLASM PROGRESSION [None]
  - PORTAL VEIN THROMBOSIS [None]
